FAERS Safety Report 6106671-6 (Version None)
Quarter: 2009Q1

REPORT INFORMATION
  Report Type: 
  Country: None (occurrence: None)
  Receive Date: 20090304
  Receipt Date: 20090227
  Transmission Date: 20090719
  Serious: Yes (Congenital Anomaly)
  Sender: FDA-Public Use
  Company Number: SP02278

PATIENT

DRUGS (2)
  1. COLAZAL [Suspect]
     Indication: COLITIS ULCERATIVE
     Dosage: 4.5 GM, ORAL
     Route: 048
     Dates: start: 20010101
  2. FOLIC ACID [Concomitant]

REACTIONS (3)
  - KARYOTYPE ANALYSIS ABNORMAL [None]
  - MATERNAL DRUGS AFFECTING FOETUS [None]
  - TURNER'S SYNDROME [None]
